FAERS Safety Report 7200142-1 (Version None)
Quarter: 2010Q4

REPORT INFORMATION
  Report Type: 
  Country: None (occurrence: None)
  Receive Date: 20101228
  Receipt Date: 20101221
  Transmission Date: 20110411
  Serious: Yes (Hospitalization)
  Sender: FDA-Public Use
  Company Number: US-JNJFOC-20101207762

PATIENT
  Sex: Female
  Weight: 44.45 kg

DRUGS (5)
  1. TOPAMAX [Suspect]
     Indication: MIGRAINE
     Route: 048
  2. TOPAMAX [Suspect]
     Route: 048
  3. UNSPECIFIED MEDICATION FOR HYPOTHYROIDISM [Concomitant]
     Indication: HYPOTHYROIDISM
     Route: 048
  4. UNKNOWN MEDICATION [Concomitant]
     Indication: PARATHYROID DISORDER
     Route: 048
  5. MORPHINE [Concomitant]
     Indication: PAIN
     Route: 065

REACTIONS (5)
  - ACTIVITIES OF DAILY LIVING IMPAIRED [None]
  - CONFUSIONAL STATE [None]
  - MUSCULOSKELETAL DISORDER [None]
  - STUPOR [None]
  - VICTIM OF SEXUAL ABUSE [None]
